FAERS Safety Report 20627719 (Version 1)
Quarter: 2022Q1

REPORT INFORMATION
  Report Type: Report from Study
  Country: US (occurrence: US)
  Receive Date: 20220323
  Receipt Date: 20220323
  Transmission Date: 20220423
  Serious: Yes (Hospitalization)
  Sender: FDA-Public Use
  Company Number: US-ABBVIE-22P-163-4317518-00

PATIENT
  Age: 74 Year
  Sex: Male
  Weight: 119.2 kg

DRUGS (9)
  1. IBRUTINIB [Suspect]
     Active Substance: IBRUTINIB
     Indication: Central nervous system lymphoma
     Route: 048
     Dates: start: 20220216
  2. TEMOZOLOMIDE [Concomitant]
     Active Substance: TEMOZOLOMIDE
     Indication: Central nervous system lymphoma
     Dates: start: 20220220, end: 20220223
  3. ETOPOSIDE [Concomitant]
     Active Substance: ETOPOSIDE
     Indication: Central nervous system lymphoma
     Dates: start: 20220220, end: 20220223
  4. DOXIL [Concomitant]
     Active Substance: DOXORUBICIN HYDROCHLORIDE
     Indication: Central nervous system lymphoma
     Dates: start: 20220220, end: 20220220
  5. DEXAMETHASONE [Concomitant]
     Active Substance: DEXAMETHASONE
     Indication: Central nervous system lymphoma
     Dates: start: 20220219, end: 20220223
  6. RITUXIMAB [Concomitant]
     Active Substance: RITUXIMAB
     Indication: Central nervous system lymphoma
     Dates: start: 202111, end: 202201
  7. RITUXIMAB [Concomitant]
     Active Substance: RITUXIMAB
     Dates: start: 20220219, end: 20220220
  8. PEGFILGRASTIM [Concomitant]
     Active Substance: PEGFILGRASTIM
     Indication: Central nervous system lymphoma
     Dates: start: 20220224, end: 20220224
  9. ISAVUCONAZOLE [Concomitant]
     Active Substance: ISAVUCONAZOLE
     Indication: Product used for unknown indication

REACTIONS (2)
  - Muscular weakness [Not Recovered/Not Resolved]
  - Sepsis [Not Recovered/Not Resolved]

NARRATIVE: CASE EVENT DATE: 20220227
